FAERS Safety Report 5826890-3 (Version None)
Quarter: 2008Q3

REPORT INFORMATION
  Report Type: 
  Country: None (occurrence: None)
  Receive Date: 20080729
  Receipt Date: 20080729
  Transmission Date: 20090109
  Serious: Yes (Life-Threatening, Hospitalization, Disabling)
  Sender: FDA-Public Use
  Company Number: None

PATIENT
  Age: 50 Year
  Sex: Female
  Weight: 83.9154 kg

DRUGS (1)
  1. ALEVE [Suspect]
     Indication: ARTHRITIS
     Dosage: ONE PILL A DAY 1-3 TIMES A WEEK PO
     Route: 048
     Dates: start: 20071001, end: 20080315

REACTIONS (2)
  - EATING DISORDER [None]
  - WEIGHT DECREASED [None]
